FAERS Safety Report 15755967 (Version 3)
Quarter: 2019Q1

REPORT INFORMATION
  Report Type: Spontaneous
  Country: US (occurrence: US)
  Receive Date: 20181224
  Receipt Date: 20190318
  Transmission Date: 20190417
  Serious: Yes (Other)
  Sender: FDA-Public Use
  Company Number: US-009507513-1812USA010611

PATIENT
  Age: 29 Year
  Sex: Male

DRUGS (1)
  1. TEMODAR [Suspect]
     Active Substance: TEMOZOLOMIDE
     Indication: GLIOBLASTOMA
     Dosage: 12 CYCLES
     Dates: start: 201703, end: 201805

REACTIONS (2)
  - Metastases to central nervous system [Unknown]
  - Glioblastoma [Unknown]

NARRATIVE: CASE EVENT DATE: 201807
